FAERS Safety Report 6730475-4 (Version None)
Quarter: 2010Q2

REPORT INFORMATION
  Report Type: 
  Country: None (occurrence: None)
  Receive Date: 20100518
  Receipt Date: 20100506
  Transmission Date: 20101027
  Serious: Yes (Other)
  Sender: FDA-Public Use
  Company Number: JO-ROCHE-701909

PATIENT
  Age: 58 Year
  Sex: Male

DRUGS (2)
  1. AVASTIN [Suspect]
     Indication: RENAL CANCER
     Dosage: ROUTE REPORTED AS: IV INFUSION.
     Route: 042
     Dates: start: 20100425, end: 20100509
  2. SORAFENIB [Concomitant]
     Indication: RENAL CANCER
     Route: 048
     Dates: start: 20100425

REACTIONS (2)
  - CONFUSIONAL STATE [None]
  - HALLUCINATION, VISUAL [None]
